FAERS Safety Report 25354718 (Version 2)
Quarter: 2025Q2

REPORT INFORMATION
  Report Type: Spontaneous
  Country: US (occurrence: US)
  Receive Date: 20250524
  Receipt Date: 20250627
  Transmission Date: 20250716
  Serious: No
  Sender: MERCK SHARP & DOHME LLC
  Company Number: US-009507513-2286938

PATIENT
  Age: 52 Year
  Sex: Male

DRUGS (2)
  1. KEYTRUDA [Suspect]
     Active Substance: PEMBROLIZUMAB
     Indication: Non-small cell lung cancer
     Route: 042
     Dates: start: 202501
  2. ALIMTA [Concomitant]
     Active Substance: PEMETREXED DISODIUM

REACTIONS (4)
  - Rectal fissure [Unknown]
  - Diarrhoea [Unknown]
  - Proctalgia [Unknown]
  - Flatulence [Unknown]

NARRATIVE: CASE EVENT DATE: 20250101
